FAERS Safety Report 4694927-3 (Version None)
Quarter: 2005Q2

REPORT INFORMATION
  Report Type: 
  Country: None (occurrence: None)
  Receive Date: 20050620
  Receipt Date: 20050607
  Transmission Date: 20051028
  Serious: Yes (Life-Threatening, Hospitalization)
  Sender: FDA-Public Use
  Company Number: GXKR2005US01210

PATIENT
  Age: 58 Year
  Sex: Female

DRUGS (4)
  1. ATENOLOL [Suspect]
     Indication: HYPERTENSION
     Dosage: 100 MG, QD
  2. CAPTOPRIL [Suspect]
     Dosage: 50 MG, BID
  3. HYDROCHLOROTHIAZIDE [Suspect]
     Indication: OEDEMA
  4. DILTIAZEM [Suspect]
     Indication: HYPERTENSION
     Dosage: 600 MG, 20 MG, QD

REACTIONS (9)
  - ASTHENIA [None]
  - BLOOD CREATININE INCREASED [None]
  - BLOOD GLUCOSE INCREASED [None]
  - BLOOD POTASSIUM INCREASED [None]
  - BLOOD PRESSURE DECREASED [None]
  - BLOOD UREA INCREASED [None]
  - BRADYCARDIA [None]
  - DRUG INTERACTION INHIBITION [None]
  - SYNCOPE [None]
